FAERS Safety Report 5344974-3 (Version None)
Quarter: 2007Q2

REPORT INFORMATION
  Report Type: 
  Country: None (occurrence: None)
  Receive Date: 20070416
  Receipt Date: 20070103
  Transmission Date: 20071010
  Serious: No
  Sender: FDA-Public Use
  Company Number: 2007SP000039

PATIENT
  Age: 45 Year
  Sex: Female
  Weight: 53.5244 kg

DRUGS (8)
  1. LUNESTA [Suspect]
     Dosage: 1 MG;PRN;ORAL
     Route: 048
     Dates: start: 20061201, end: 20061230
  2. LUNESTA [Suspect]
     Dosage: 1 MG;PRN;ORAL
     Route: 048
     Dates: start: 20070103
  3. ESTROGEN NOS [Concomitant]
  4. FLONASE [Concomitant]
  5. NEXIUM [Concomitant]
  6. SIMPLY SLEEP [Concomitant]
  7. AMBIEN [Concomitant]
  8. VALERIAN EXTRACT [Concomitant]

REACTIONS (2)
  - INITIAL INSOMNIA [None]
  - REBOUND EFFECT [None]
